FAERS Safety Report 18342518 (Version 1)
Quarter: 2020Q4

REPORT INFORMATION
  Report Type: Spontaneous
  Country: US (occurrence: US)
  Receive Date: 20201001
  Receipt Date: 20201001
  Transmission Date: 20210113
  Serious: Yes (Hospitalization)
  Sender: FDA-Public Use
  Company Number: None

PATIENT
  Sex: Male

DRUGS (1)
  1. TACROLIMUS++ (ACCORD) 1MG ACCORD HEALTHCARE [Suspect]
     Active Substance: TACROLIMUS
     Indication: APLASTIC ANAEMIA
     Route: 048
     Dates: start: 202005

REACTIONS (1)
  - Manufacturing product shipping issue [None]
